FAERS Safety Report 7978722-5 (Version None)
Quarter: 2011Q4

REPORT INFORMATION
  Report Type: 
  Country: None (occurrence: None)
  Receive Date: 20111214
  Receipt Date: 20111206
  Transmission Date: 20120403
  Serious: Yes (Other)
  Sender: FDA-Public Use
  Company Number: US-ASTELLAS-2011US008291

PATIENT

DRUGS (2)
  1. CELEXA [Concomitant]
     Indication: PRODUCT USED FOR UNKNOWN INDICATION
     Dosage: 40 MG, UID/QD
     Route: 048
     Dates: start: 20111001
  2. VESICARE [Suspect]
     Indication: INCONTINENCE
     Dosage: 5 MG, UID/QD
     Route: 048
     Dates: start: 20000101

REACTIONS (2)
  - DIABETES MELLITUS INADEQUATE CONTROL [None]
  - OVARIAN CYST [None]
